FAERS Safety Report 25122301 (Version 1)
Quarter: 2025Q1

REPORT INFORMATION
  Report Type: Report from Study
  Country: CA (occurrence: CA)
  Receive Date: 20250326
  Receipt Date: 20250326
  Transmission Date: 20250409
  Serious: Yes (Other)
  Sender: CSL BEHRING
  Company Number: CA-BEH-2024177162

PATIENT
  Age: 2 Year
  Sex: Female
  Weight: 12.7 kg

DRUGS (11)
  1. HIZENTRA [Suspect]
     Active Substance: HUMAN IMMUNOGLOBULIN G
     Indication: Primary immunodeficiency syndrome
     Dosage: 2 G, QW
     Route: 058
     Dates: start: 20240807
  2. HIZENTRA [Suspect]
     Active Substance: HUMAN IMMUNOGLOBULIN G
     Dosage: 1 G, QW
     Route: 058
     Dates: start: 20240807
  3. HIZENTRA [Suspect]
     Active Substance: HUMAN IMMUNOGLOBULIN G
     Dosage: 2 G, QW
     Route: 065
     Dates: start: 20240807
  4. HIZENTRA [Suspect]
     Active Substance: HUMAN IMMUNOGLOBULIN G
     Dosage: PRODUCT STRENGTH:2G, QW
     Route: 065
     Dates: start: 20240807
  5. SULFATRIM [Concomitant]
     Active Substance: SULFAMETHOXAZOLE\TRIMETHOPRIM
  6. MONTELUKAST [Concomitant]
     Active Substance: MONTELUKAST
  7. AMITRIPTYLINE [Concomitant]
     Active Substance: AMITRIPTYLINE
  8. ENALAPRIL [Concomitant]
     Active Substance: ENALAPRIL
  9. SYMBICORT [Concomitant]
     Active Substance: BUDESONIDE\FORMOTEROL FUMARATE DIHYDRATE
  10. VENTOLIN [Concomitant]
     Active Substance: ALBUTEROL SULFATE
  11. Glaxal base [Concomitant]

REACTIONS (15)
  - Pulmonary congestion [Unknown]
  - Infusion site mass [Unknown]
  - Antibiotic therapy [Unknown]
  - Poor venous access [Unknown]
  - Nasopharyngitis [Unknown]
  - Wheezing [Unknown]
  - Rhinorrhoea [Unknown]
  - Nasal congestion [Unknown]
  - Rhinorrhoea [Unknown]
  - Poverty of speech [Unknown]
  - Nasal discharge discolouration [Unknown]
  - Rales [Unknown]
  - Mite allergy [Unknown]
  - Allergy to animal [Unknown]
  - Cough [Unknown]

NARRATIVE: CASE EVENT DATE: 20240807
